FAERS Safety Report 15186175 (Version 2)
Quarter: 2019Q1

REPORT INFORMATION
  Report Type: Report from Study
  Country: US (occurrence: US)
  Receive Date: 20180723
  Receipt Date: 20190130
  Transmission Date: 20190417
  Serious: No
  Sender: FDA-Public Use
  Company Number: US-EXELIXIS-CABO-17011677

PATIENT
  Age: 76 Year
  Sex: Male

DRUGS (7)
  1. DILANTIN [Concomitant]
     Active Substance: PHENYTOIN
  2. ASPIR 81 [Concomitant]
     Active Substance: ASPIRIN
  3. MEVACOR [Concomitant]
     Active Substance: LOVASTATIN
  4. NORVASC [Concomitant]
     Active Substance: AMLODIPINE BESYLATE
  5. COZAAR [Concomitant]
     Active Substance: LOSARTAN POTASSIUM
  6. CABOMETYX [Suspect]
     Active Substance: CABOZANTINIB S-MALATE
     Indication: RENAL CANCER
     Dosage: 60 MG, QD
     Route: 048
     Dates: start: 20160809
  7. TERAZOSIN [Concomitant]
     Active Substance: TERAZOSIN\TERAZOSIN HYDROCHLORIDE

REACTIONS (1)
  - Nervousness [Unknown]

NARRATIVE: CASE EVENT DATE: 20171211
